FAERS Safety Report 9455820 (Version 1)
Quarter: 2013Q3

REPORT INFORMATION
  Report Type: Spontaneous
  Country: US (occurrence: US)
  Receive Date: 20130813
  Receipt Date: 20130813
  Transmission Date: 20140515
  Serious: No
  Sender: FDA-Public Use
  Company Number: US-BAYER-2013-097807

PATIENT
  Age: 64 Year
  Sex: Male
  Weight: 99.77 kg

DRUGS (4)
  1. ALEVE CAPLET [Suspect]
     Indication: ANALGESIC THERAPY
     Dosage: 1 DF, QD
     Route: 048
     Dates: start: 201308, end: 20130806
  2. ALEVE CAPLET [Suspect]
     Indication: ARTHRITIS
  3. ALEVE CAPLET [Suspect]
     Indication: PAIN IN EXTREMITY
  4. ALEVE CAPLET [Suspect]
     Indication: BACK PAIN

REACTIONS (3)
  - Abdominal distension [Recovered/Resolved]
  - Nausea [Recovered/Resolved]
  - Drug ineffective [None]
